FAERS Safety Report 6664474-8 (Version None)
Quarter: 2010Q2

REPORT INFORMATION
  Report Type: 
  Country: None (occurrence: None)
  Receive Date: 20100401
  Receipt Date: 20100329
  Transmission Date: 20101027
  Serious: Yes (Hospitalization)
  Sender: FDA-Public Use
  Company Number: US-GILEAD-2010-0028175

PATIENT
  Sex: Female

DRUGS (5)
  1. LETAIRIS [Suspect]
     Indication: PULMONARY ARTERIAL HYPERTENSION
     Route: 048
     Dates: start: 20100305
  2. REVATIO [Concomitant]
  3. COUMADIN [Concomitant]
  4. PREDNISONE TAB [Concomitant]
  5. IBUPROFEN [Concomitant]

REACTIONS (1)
  - LUNG INFECTION [None]
